FAERS Safety Report 9844948 (Version 1)
Quarter: 2014Q1

REPORT INFORMATION
  Report Type: Spontaneous
  Country: US (occurrence: US)
  Receive Date: 20140127
  Receipt Date: 20140127
  Transmission Date: 20141002
  Serious: No
  Sender: FDA-Public Use
  Company Number: US-BAYER-2014-013269

PATIENT
  Sex: Female

DRUGS (1)
  1. ALEVE TABLET [Suspect]
     Indication: PRODUCT USED FOR UNKNOWN INDICATION
     Dosage: 1 DF, OTHER FREQUENCY
     Route: 048

REACTIONS (2)
  - Hypersensitivity [Recovered/Resolved]
  - Urticaria [Recovered/Resolved]
